FAERS Safety Report 10358580 (Version 2)
Quarter: 2014Q3

REPORT INFORMATION
  Report Type: Spontaneous
  Country: BR (occurrence: BR)
  Receive Date: 20140803
  Receipt Date: 20140819
  Transmission Date: 20150326
  Serious: No
  Sender: FDA-Public Use
  Company Number: PHHY2014BR094449

PATIENT
  Sex: Female
  Weight: 43 kg

DRUGS (2)
  1. FORASEQ [Suspect]
     Active Substance: BUDESONIDE\FORMOTEROL FUMARATE
     Dosage: UNK UKN, BID
     Route: 055
  2. FORASEQ [Suspect]
     Active Substance: BUDESONIDE\FORMOTEROL FUMARATE
     Indication: DYSPNOEA
     Dosage: UNK UKN, BID
     Route: 055

REACTIONS (1)
  - Device malfunction [Unknown]
